FAERS Safety Report 8220827-8 (Version None)
Quarter: 2012Q1

REPORT INFORMATION
  Report Type: 
  Country: None (occurrence: None)
  Receive Date: 20120320
  Receipt Date: 20120316
  Transmission Date: 20120608
  Serious: Yes (Hospitalization)
  Sender: FDA-Public Use
  Company Number: US-PFIZER INC-2012070100

PATIENT
  Sex: Female
  Weight: 83.447 kg

DRUGS (12)
  1. PROTONIX [Concomitant]
     Dosage: 40 MG, 1X/DAY
  2. VITAMIN D [Concomitant]
     Dosage: 400 IU, 1X/DAY
  3. FISH OIL [Concomitant]
     Dosage: 1000 MG, 3X/DAY
  4. COLACE [Concomitant]
     Dosage: UNK, 3X/DAY
  5. COZAAR [Concomitant]
     Dosage: 50 MG, 1X/DAY
  6. LASIX [Concomitant]
     Indication: HYPERTENSION
     Dosage: 20 MG, 1X/DAY
  7. MAGNESIUM OXIDE [Concomitant]
     Dosage: 400 MG, 1X/DAY
  8. VITAMIN E [Concomitant]
     Dosage: 400 IU, 1X/DAY
  9. SUTENT [Suspect]
     Indication: RENAL CANCER
     Dosage: 50 MG, 1X/DAY
     Route: 048
     Dates: start: 20120211, end: 20120303
  10. PROPRANOLOL [Concomitant]
     Indication: HYPERTENSION
     Dosage: 160 MG, 1X/DAY
  11. CITRACAL [Concomitant]
     Dosage: UNK, 2X/DAY
  12. FLUTICASONE [Concomitant]
     Dosage: 150MG 1-2 IN EACH NOSTRIL, 1X/DAY
     Route: 045

REACTIONS (8)
  - RED BLOOD CELL COUNT DECREASED [None]
  - NAUSEA [None]
  - THINKING ABNORMAL [None]
  - WHITE BLOOD CELL COUNT DECREASED [None]
  - DIZZINESS [None]
  - ASTHENIA [None]
  - BLOOD CALCIUM INCREASED [None]
  - BALANCE DISORDER [None]
